FAERS Safety Report 24602667 (Version 1)
Quarter: 2024Q4

REPORT INFORMATION
  Report Type: Report from Study
  Country: US (occurrence: US)
  Receive Date: 20241111
  Receipt Date: 20241111
  Transmission Date: 20250115
  Serious: Yes (Other)
  Sender: ROCHE
  Company Number: US-ROCHE-10000127058

PATIENT

DRUGS (2)
  1. ENTRECTINIB [Suspect]
     Active Substance: ENTRECTINIB
     Indication: Neoplasm
     Route: 065
  2. LAROTRECTINIB [Suspect]
     Active Substance: LAROTRECTINIB
     Indication: Neoplasm
     Route: 065

REACTIONS (4)
  - Blood creatinine increased [Unknown]
  - Neurotoxicity [Unknown]
  - Cardiac failure [Unknown]
  - Fatigue [Unknown]
